FAERS Safety Report 17444728 (Version 3)
Quarter: 2020Q3

REPORT INFORMATION
  Report Type: Spontaneous
  Country: GR (occurrence: GR)
  Receive Date: 20200221
  Receipt Date: 20200723
  Transmission Date: 20201102
  Serious: Yes (Hospitalization)
  Sender: FDA-Public Use
  Company Number: GR-009507513-2002GRC006773

PATIENT
  Sex: Female
  Weight: 60 kg

DRUGS (34)
  1. MABTHERA [Suspect]
     Active Substance: RITUXIMAB
     Indication: NON-HODGKIN^S LYMPHOMA
     Dosage: 1400 MILLIGRAM (6 CYCLES)
     Route: 058
     Dates: start: 20190625, end: 20191009
  2. MEROPENEM. [Suspect]
     Active Substance: MEROPENEM
     Indication: NON-HODGKIN^S LYMPHOMA
     Dosage: 2 GRAM (1 CYCLE 2GX3)
     Route: 042
     Dates: start: 20200103, end: 20200113
  3. CANCIDAS [Suspect]
     Active Substance: CASPOFUNGIN ACETATE
     Indication: NON-HODGKIN^S LYMPHOMA
     Dosage: 50 MILLIGRAM, UNK
     Route: 042
     Dates: start: 20200105, end: 20200113
  4. VEPESID [Suspect]
     Active Substance: ETOPOSIDE
     Indication: NON-HODGKIN^S LYMPHOMA
     Dosage: UNK
     Route: 058
  5. VEPESID [Suspect]
     Active Substance: ETOPOSIDE
     Dosage: 90 MILLIGRAM (2 CYCLES)
     Route: 042
     Dates: start: 20191119, end: 20200113
  6. MABTHERA [Suspect]
     Active Substance: RITUXIMAB
     Dosage: 1400 MILLIGRAM (1 CYCLE)
     Route: 058
     Dates: start: 20191113, end: 20191210
  7. VALTREX [Suspect]
     Active Substance: VALACYCLOVIR HYDROCHLORIDE
     Indication: NON-HODGKIN^S LYMPHOMA
     Dosage: 500 MILLIGRAM, UNK
     Route: 048
     Dates: start: 20190513, end: 20190516
  8. CYCLOPHOSPHAMIDE (+) DOXORUBICIN (+) PREDNISONE (+) VINCRISTINE SULFAT [Suspect]
     Active Substance: CYCLOPHOSPHAMIDE\DOXORUBICIN\PREDNISONE\VINCRISTINE
     Indication: DIFFUSE LARGE B-CELL LYMPHOMA
     Dosage: 8 CYCLES
     Route: 065
     Dates: start: 20190513, end: 20191013
  9. NORVASC [Suspect]
     Active Substance: AMLODIPINE BESYLATE
     Indication: HYPERTENSION
     Dosage: UNK
     Route: 058
  10. HYALURONIDASE [Suspect]
     Active Substance: HYALURONIDASE
     Indication: DIFFUSE LARGE B-CELL LYMPHOMA
     Dosage: 3 CYCLES
     Route: 058
     Dates: start: 20190513, end: 20190625
  11. RITUXIMAB. [Suspect]
     Active Substance: RITUXIMAB
     Dosage: 2 CYCLES
     Route: 042
     Dates: start: 20191113, end: 20191223
  12. ALDACTONE [Suspect]
     Active Substance: SPIRONOLACTONE
     Indication: NON-HODGKIN^S LYMPHOMA
     Dosage: UNK
     Route: 042
  13. MABTHERA [Suspect]
     Active Substance: RITUXIMAB
     Dosage: 650 MILLIGRAM (1 CYCLE)
     Route: 042
     Dates: start: 20191222, end: 20200113
  14. VALTREX [Suspect]
     Active Substance: VALACYCLOVIR HYDROCHLORIDE
     Dosage: 500 MILLIGRAM (1 CYCLE)
     Route: 048
     Dates: start: 20200108, end: 20200113
  15. VALTREX [Suspect]
     Active Substance: VALACYCLOVIR HYDROCHLORIDE
     Dosage: UNK
     Route: 042
  16. CHLORPHENAMINE [Suspect]
     Active Substance: CHLORPHENIRAMINE MALEATE
     Indication: NON-HODGKIN^S LYMPHOMA
     Dosage: UNK
     Route: 048
     Dates: start: 20200110, end: 20200112
  17. DOXORUBICIN [Suspect]
     Active Substance: DOXORUBICIN
     Dosage: UNK
     Route: 058
  18. ARACYTINE [Suspect]
     Active Substance: CYTARABINE
     Indication: NON-HODGKIN^S LYMPHOMA
     Dosage: 3 GRAM (2 CYCLES)
     Route: 042
     Dates: start: 20191123, end: 20200113
  19. CISPLATIN (+) CYTARABINE (+) ETOPOSIDE (+) METHYLPREDNISOLONE [Suspect]
     Active Substance: CISPLATIN\CYTARABINE\ETOPOSIDE\METHYLPREDNISOLONE (ESHAP)
     Indication: DIFFUSE LARGE B-CELL LYMPHOMA
     Dosage: 2 CYCLES
     Route: 065
     Dates: start: 20191113, end: 20191223
  20. LASIX [Suspect]
     Active Substance: FUROSEMIDE
     Indication: NON-HODGKIN^S LYMPHOMA
     Dosage: 1 CYCLE
     Route: 042
     Dates: start: 20200110, end: 20200113
  21. CHLORPHENAMINE [Suspect]
     Active Substance: CHLORPHENIRAMINE MALEATE
     Indication: NON-HODGKIN^S LYMPHOMA
     Dosage: UNK
     Route: 042
  22. ALBUMIN HUMAN [Suspect]
     Active Substance: ALBUMIN HUMAN
     Indication: NON-HODGKIN^S LYMPHOMA
     Dosage: 1 CYLCE 50MG X2
     Route: 042
     Dates: start: 20200110, end: 20200113
  23. CUBICIN [Suspect]
     Active Substance: DAPTOMYCIN
     Indication: NON-HODGKIN^S LYMPHOMA
     Dosage: 350 MILLIGRAM (1 CYCLE)
     Route: 042
     Dates: start: 20200102, end: 20200113
  24. EPOETIN ALFA [Suspect]
     Active Substance: ERYTHROPOIETIN
     Indication: ANAEMIA
     Dosage: 1 CYCLE
     Route: 058
     Dates: start: 20190523, end: 20200124
  25. FILGRASTIM [Suspect]
     Active Substance: FILGRASTIM
     Indication: LEUKOPENIA
     Dosage: UNK
     Route: 058
     Dates: start: 20190523, end: 20200117
  26. ARACYTINE [Suspect]
     Active Substance: CYTARABINE
     Dosage: UNK
     Route: 058
  27. RITUXIMAB. [Suspect]
     Active Substance: RITUXIMAB
     Indication: DIFFUSE LARGE B-CELL LYMPHOMA
     Dosage: 8 CYCLES
     Route: 042
     Dates: start: 20190513, end: 20191013
  28. CISPLATIN. [Suspect]
     Active Substance: CISPLATIN
     Indication: NON-HODGKIN^S LYMPHOMA
     Dosage: UNK
     Route: 058
  29. CISPLATIN. [Suspect]
     Active Substance: CISPLATIN
     Dosage: 38 MILLIGRAM (2 CYCLES)
     Route: 042
     Dates: start: 20191119, end: 20200113
  30. ALDACTONE [Suspect]
     Active Substance: SPIRONOLACTONE
     Indication: NON-HODGKIN^S LYMPHOMA
     Dosage: 100 MILLIGRAM (1 CYCLE)
     Route: 048
     Dates: start: 20200105, end: 20200112
  31. NORVASC [Suspect]
     Active Substance: AMLODIPINE BESYLATE
     Dosage: 5 MILLIGRAM (1 CYCLE)
     Route: 048
     Dates: start: 20190515, end: 20190516
  32. VALTREX [Suspect]
     Active Substance: VALACYCLOVIR HYDROCHLORIDE
     Indication: NON-HODGKIN^S LYMPHOMA
     Dosage: UNK
     Route: 058
  33. LOSEC [Suspect]
     Active Substance: OMEPRAZOLE
     Indication: NON-HODGKIN^S LYMPHOMA
     Dosage: 1 CYCLES TWICE
     Route: 042
     Dates: start: 20191223, end: 20200113
  34. DOXORUBICIN [Suspect]
     Active Substance: DOXORUBICIN
     Indication: NON-HODGKIN^S LYMPHOMA
     Dosage: 8 CYCLES
     Route: 042
     Dates: start: 20190513, end: 20191009

REACTIONS (2)
  - Disease progression [Unknown]
  - Diffuse large B-cell lymphoma refractory [Unknown]
